FAERS Safety Report 7476855-3 (Version None)
Quarter: 2011Q2

REPORT INFORMATION
  Report Type: 
  Country: None (occurrence: None)
  Receive Date: 20110512
  Receipt Date: 20110502
  Transmission Date: 20111010
  Serious: Yes (Hospitalization, Other)
  Sender: FDA-Public Use
  Company Number: CN-ELI_LILLY_AND_COMPANY-CN201105001372

PATIENT
  Age: 45 Year
  Sex: Male

DRUGS (2)
  1. GEMCITABINE HYDROCHLORIDE [Suspect]
     Dosage: 1000 MG/M2, UNKNOWN
     Route: 065
  2. CISPLATIN [Concomitant]
     Dosage: 75 MG/M2, DAY 1 OF EACH 21 DAY CYCLE
     Route: 065

REACTIONS (3)
  - MYELITIS TRANSVERSE [None]
  - THROMBOCYTOPENIA [None]
  - NEUTROPENIA [None]
